FAERS Safety Report 9995786 (Version 2)
Quarter: 2014Q2

REPORT INFORMATION
  Report Type: Spontaneous
  Country: US (occurrence: US)
  Receive Date: 20140311
  Receipt Date: 20140515
  Transmission Date: 20141212
  Serious: Yes (Other)
  Sender: FDA-Public Use
  Company Number: US-JNJFOC-20140302133

PATIENT
  Age: 62 Year
  Sex: Female
  Weight: 81.65 kg

DRUGS (11)
  1. INVOKANA [Suspect]
     Indication: TYPE 2 DIABETES MELLITUS
     Route: 048
     Dates: start: 20140227, end: 20140228
  2. JANUVIA [Interacting]
     Indication: TYPE 2 DIABETES MELLITUS
     Dates: start: 20130926
  3. GLIMEPIRIDE [Interacting]
     Indication: TYPE 2 DIABETES MELLITUS
     Dates: start: 20130926
  4. CRESTOR [Concomitant]
     Indication: BLOOD CHOLESTEROL ABNORMAL
     Route: 048
     Dates: start: 2013
  5. LISINOPRIL [Concomitant]
     Indication: HYPERTENSION
     Route: 048
     Dates: start: 2013
  6. ESTRADIOL [Concomitant]
     Indication: CYSTOCELE
  7. LOW DOSE ASPIRIN [Concomitant]
  8. FISH OIL [Concomitant]
  9. MULTIVITAMINS [Concomitant]
  10. VITAMIN D [Concomitant]
  11. BILBERRY [Concomitant]

REACTIONS (10)
  - Vomiting [Recovered/Resolved]
  - Nausea [Recovered/Resolved]
  - Abnormal loss of weight [Recovered/Resolved]
  - Drug interaction [Recovered/Resolved]
  - Pollakiuria [Recovered/Resolved]
  - Diarrhoea [Recovered/Resolved]
  - Pyrexia [Recovered/Resolved]
  - Hypersomnia [Recovered/Resolved]
  - Hyperhidrosis [Recovered/Resolved]
  - Aspartate aminotransferase increased [Recovered/Resolved]
